FAERS Safety Report 4323807-8 (Version None)
Quarter: 2004Q1

REPORT INFORMATION
  Report Type: 
  Country: None (occurrence: None)
  Receive Date: 20040324
  Receipt Date: 20040324
  Transmission Date: 20041129
  Serious: Yes (Life-Threatening)
  Sender: FDA-Public Use
  Company Number: None

PATIENT
  Sex: Male
  Weight: 63.05 kg

DRUGS (1)
  1. WELLBUTRIN SR [Suspect]
     Indication: DEPRESSION
     Dosage: 150 MG BID
     Dates: start: 20040201, end: 20040320

REACTIONS (6)
  - AGGRESSION [None]
  - ALCOHOLISM [None]
  - IMPAIRED DRIVING ABILITY [None]
  - IMPRISONMENT [None]
  - POISONING [None]
  - SUICIDE ATTEMPT [None]
